FAERS Safety Report 5326177-1 (Version None)
Quarter: 2007Q2

REPORT INFORMATION
  Report Type: 
  Country: None (occurrence: None)
  Receive Date: 20070516
  Receipt Date: 20070507
  Transmission Date: 20071010
  Serious: Yes (Life-Threatening, Hospitalization)
  Sender: FDA-Public Use
  Company Number: DE-ROCHE-467697

PATIENT
  Age: 5 Year
  Sex: Male
  Weight: 17.2 kg

DRUGS (13)
  1. VALCYTE [Suspect]
     Route: 048
     Dates: start: 20060901, end: 20061009
  2. VALCYTE [Suspect]
     Dosage: DOSAGE WAS DECREASED.
     Route: 048
     Dates: start: 20061010
  3. GANCICLOVIR [Concomitant]
     Dosage: THE PATIENT RECEIVED GANCICLOVIR (CYMEVEN) PRIOR TO 01 SEPTEMBER 2006.
     Route: 042
     Dates: start: 20060927, end: 20061010
  4. RAPAMUNE [Concomitant]
     Dosage: DOSAGE REPORTED AS 2X1 MG.
  5. DECORTIN [Concomitant]
     Dosage: DOSAGE 1X5 MG.
  6. TRILEPTAL [Concomitant]
     Dosage: DOSAGE 2X140 MG.
  7. MAGNESIUM VERLA DRAGEES [Concomitant]
     Dosage: DOSAGE 1X1 DRAGEE.
  8. ENALAPRIL [Concomitant]
     Dosage: DOSAGE 2X2.5 MG.
  9. LORZAAR [Concomitant]
     Dosage: DOSAGE 1X6.25.
  10. RESONIUM [Concomitant]
     Dosage: DOSAGE 1X7,5 MG DISTRIBUTED OVER THE DAY.
  11. SODIUM CHLORIDE [Concomitant]
     Dosage: DOSAGE 3X1,2 G.
  12. UNSPECIFIED DRUG [Concomitant]
     Dosage: DRUG REPORTED AS BICANORM. DOSAGE 3X1 TABLET.
  13. ARANESP [Concomitant]
     Dosage: DOSAGE ONCE WEEKLY ON WEDNESDAYS, 1X10 UG S.C.

REACTIONS (12)
  - AGRANULOCYTOSIS [None]
  - CONVULSION [None]
  - ELECTROLYTE IMBALANCE [None]
  - ERYTHEMA [None]
  - GENERAL PHYSICAL HEALTH DETERIORATION [None]
  - GRAND MAL CONVULSION [None]
  - HEART RATE INCREASED [None]
  - HYPERTRICHOSIS [None]
  - HYPOKALAEMIA [None]
  - HYPONATRAEMIA [None]
  - LEUKOPENIA [None]
  - METABOLIC ACIDOSIS [None]
